FAERS Safety Report 6407226-6 (Version None)
Quarter: 2009Q4

REPORT INFORMATION
  Report Type: 
  Country: None (occurrence: None)
  Receive Date: 20091020
  Receipt Date: 20091013
  Transmission Date: 20100525
  Serious: Yes (Other)
  Sender: FDA-Public Use
  Company Number: B0584661A

PATIENT
  Age: 77 Year
  Sex: Male

DRUGS (7)
  1. ALLI [Suspect]
     Dosage: 60MG THREE TIMES PER DAY
     Route: 065
     Dates: start: 20090602, end: 20090607
  2. STATINES [Concomitant]
  3. BETA-BLOCKER [Concomitant]
  4. ZYLORIC [Concomitant]
  5. CALCIUM ANTAGONIST [Concomitant]
  6. ACE INHIBITOR [Concomitant]
  7. MARCUMAR [Concomitant]

REACTIONS (2)
  - COAGULATION TEST ABNORMAL [None]
  - LABILE BLOOD PRESSURE [None]
